FAERS Safety Report 6343030-5 (Version None)
Quarter: 2009Q3

REPORT INFORMATION
  Report Type: 
  Country: None (occurrence: None)
  Receive Date: 20090908
  Receipt Date: 20090828
  Transmission Date: 20100115
  Serious: Yes (Other)
  Sender: FDA-Public Use
  Company Number: US-BRACCO-003364

PATIENT
  Age: 65 Year
  Sex: Male

DRUGS (4)
  1. MAGNESIUM CITRATE [Suspect]
     Indication: COMPUTED TOMOGRAPHIC COLONOGRAPHY
     Route: 048
     Dates: start: 20090728, end: 20090728
  2. ELECTROLYTE SOLUTIONS [Concomitant]
     Route: 065
     Dates: start: 20090729
  3. DIURETICS [Concomitant]
  4. HYDROCHLOROTHIAZIDE [Concomitant]

REACTIONS (3)
  - HYPOVOLAEMIA [None]
  - MYOCARDIAL INFARCTION [None]
  - SYNCOPE [None]
